FAERS Safety Report 18559523 (Version 1)
Quarter: 2020Q4

REPORT INFORMATION
  Report Type: Spontaneous
  Country: US (occurrence: US)
  Receive Date: 20201128
  Receipt Date: 20201128
  Transmission Date: 20210114
  Serious: Yes (Life-Threatening, Hospitalization, Disabling, Other)
  Sender: FDA-Public Use
  Company Number: None

PATIENT
  Age: 53 Year
  Sex: Female
  Weight: 47.25 kg

DRUGS (14)
  1. MINERAL ALGAE [Concomitant]
  2. ZINC. [Concomitant]
     Active Substance: ZINC
  3. LYSINE [Concomitant]
     Active Substance: LYSINE
  4. TRINTELLIX [Concomitant]
     Active Substance: VORTIOXETINE HYDROBROMIDE
  5. VITAMIN D [Concomitant]
     Active Substance: VITAMIN D NOS
  6. ABILIFY [Concomitant]
     Active Substance: ARIPIPRAZOLE
  7. VITAMIN B COMPLEX WITH C [Concomitant]
     Active Substance: ASCORBIC ACID\CALCIUM PANTOTHENATE\CYANOCOBALAMIN\NIACINAMIDE\PYRIDOXINE HYDROCHLORIDE\RIBOFLAVIN\THIAMINE MONONITRATE
  8. VITAMIN K [Concomitant]
     Active Substance: PHYTONADIONE
  9. CIPROFLOXACIN. [Suspect]
     Active Substance: CIPROFLOXACIN
     Indication: SINUSITIS
     Dosage: ?          QUANTITY:1 TABLET(S);?
     Route: 048
  10. ESTRADIOL. [Concomitant]
     Active Substance: ESTRADIOL
  11. MAGNESIUM [Concomitant]
     Active Substance: MAGNESIUM
  12. TRAZODONE [Concomitant]
     Active Substance: TRAZODONE HYDROCHLORIDE
  13. MIRTAZAPINE. [Concomitant]
     Active Substance: MIRTAZAPINE
  14. CLONOZAPAM [Concomitant]
     Active Substance: CLONAZEPAM

REACTIONS (9)
  - Phobia [None]
  - Ligament rupture [None]
  - Neuropathy peripheral [None]
  - Muscular weakness [None]
  - Suicidal ideation [None]
  - Tendonitis [None]
  - Nerve injury [None]
  - Fatigue [None]
  - Depression [None]

NARRATIVE: CASE EVENT DATE: 20121031
